FAERS Safety Report 5154629-6 (Version None)
Quarter: 2006Q4

REPORT INFORMATION
  Report Type: 
  Country: None (occurrence: None)
  Receive Date: 20061113
  Receipt Date: 20031216
  Transmission Date: 20070319
  Serious: Yes (Death, Hospitalization)
  Sender: FDA-Public Use
  Company Number: 2006122445

PATIENT
  Age: 58 Year
  Sex: Male

DRUGS (2)
  1. IRINOTECAN HCL [Suspect]
     Indication: COLORECTAL CANCER
     Dosage: 480 MG ONCE, INTRAVENOUS
     Route: 042
     Dates: start: 20031111, end: 20031111
  2. CAPECITABINE (CAPECITABINE) [Suspect]
     Indication: COLORECTAL CANCER
     Dosage: 4000 MG, ORAL
     Route: 048
     Dates: start: 20031111, end: 20031121

REACTIONS (2)
  - SEPSIS [None]
  - SKIN INFECTION [None]
